FAERS Safety Report 10256709 (Version 2)
Quarter: 2014Q2

REPORT INFORMATION
  Report Type: Report from Study
  Country: DE (occurrence: DE)
  Receive Date: 20140624
  Receipt Date: 20140624
  Transmission Date: 20141212
  Serious: Yes (Life-Threatening, Hospitalization, Other)
  Sender: FDA-Public Use
  Company Number: DE-JNJFOC-20131213015

PATIENT
  Age: 71 Year
  Sex: Male
  Weight: 84 kg

DRUGS (12)
  1. XARELTO [Suspect]
     Indication: ATRIAL FIBRILLATION
     Route: 048
     Dates: start: 20131219
  2. XARELTO [Suspect]
     Indication: ATRIAL FIBRILLATION
     Route: 048
     Dates: start: 20130925, end: 20131213
  3. XARELTO [Suspect]
     Indication: CEREBROVASCULAR ACCIDENT PROPHYLAXIS
     Route: 048
     Dates: start: 20131219
  4. XARELTO [Suspect]
     Indication: CEREBROVASCULAR ACCIDENT PROPHYLAXIS
     Route: 048
     Dates: start: 20130925, end: 20131213
  5. HCT [Concomitant]
     Route: 065
     Dates: start: 201212
  6. ALLOPURINOL [Concomitant]
     Route: 065
     Dates: start: 1995
  7. MICARDIS [Concomitant]
     Route: 065
     Dates: start: 200312, end: 20140204
  8. METOPROLOL [Concomitant]
     Route: 065
     Dates: start: 20140205
  9. METOPROLOL [Concomitant]
     Route: 065
     Dates: start: 2003, end: 20140204
  10. CLEXANE [Concomitant]
     Indication: CEREBROVASCULAR ACCIDENT PROPHYLAXIS
     Route: 065
     Dates: start: 20131214, end: 20131218
  11. TORASEMID [Concomitant]
     Route: 065
     Dates: start: 20140205
  12. XIPAMID [Concomitant]
     Route: 065
     Dates: start: 20140205

REACTIONS (2)
  - Cardiac arrest [Unknown]
  - Gastrointestinal haemorrhage [Recovered/Resolved]
